FAERS Safety Report 22951863 (Version 2)
Quarter: 2023Q4

REPORT INFORMATION
  Report Type: Report from Study
  Country: CO (occurrence: CO)
  Receive Date: 20230918
  Receipt Date: 20231003
  Transmission Date: 20240109
  Serious: Yes (Hospitalization, Other)
  Sender: FDA-Public Use
  Company Number: CO-ABBVIE-5410804

PATIENT
  Age: 29 Year
  Sex: Female
  Weight: 56 kg

DRUGS (1)
  1. ZEMPLAR [Suspect]
     Active Substance: PARICALCITOL
     Indication: Hyperparathyroidism secondary
     Dosage: FORM STRENGTH: 5 MICROGRAM
     Route: 042
     Dates: start: 20220906, end: 20230824

REACTIONS (2)
  - Biliary colic [Recovered/Resolved]
  - Gallbladder disorder [Recovering/Resolving]

NARRATIVE: CASE EVENT DATE: 20230907
